FAERS Safety Report 23124326 (Version 2)
Quarter: 2023Q4

REPORT INFORMATION
  Report Type: Spontaneous
  Country: US (occurrence: US)
  Receive Date: 20231030
  Receipt Date: 20231218
  Transmission Date: 20240110
  Serious: Yes (Hospitalization)
  Sender: FDA-Public Use
  Company Number: US-RECORDATI RARE DISEASE INC.-2023007438

PATIENT

DRUGS (2)
  1. PANHEMATIN [Suspect]
     Active Substance: HEMIN
     Indication: Porphyria
     Dosage: 3 MILLIGRAM/KILOGRAM
     Dates: start: 202310
  2. GIVLAARI [Concomitant]
     Active Substance: GIVOSIRAN SODIUM
     Indication: Porphyria
     Dosage: 2 DOSAGE FORM

REACTIONS (2)
  - Pain [Recovering/Resolving]
  - Serum ferritin increased [Unknown]

NARRATIVE: CASE EVENT DATE: 20231001
